FAERS Safety Report 23687803 (Version 1)
Quarter: 2024Q1

REPORT INFORMATION
  Report Type: Report from Study
  Country: US (occurrence: US)
  Receive Date: 20240329
  Receipt Date: 20240329
  Transmission Date: 20240409
  Serious: Yes (Hospitalization)
  Sender: FDA-Public Use
  Company Number: US-ABBVIE-5671682

PATIENT
  Sex: Female

DRUGS (1)
  1. HUMIRA [Suspect]
     Active Substance: ADALIMUMAB
     Indication: Hidradenitis
     Dosage: FORM STRENGTH: 40 MILLIGRAM?CITRATE FREE
     Route: 058
     Dates: start: 20240111, end: 20240222

REACTIONS (7)
  - Dyspnoea [Recovered/Resolved]
  - Chest discomfort [Recovering/Resolving]
  - Cough [Recovering/Resolving]
  - Blood glucose increased [Unknown]
  - Blood magnesium decreased [Unknown]
  - Dyspnoea [Recovered/Resolved]
  - Respiratory distress [Recovered/Resolved]

NARRATIVE: CASE EVENT DATE: 20240101
